FAERS Safety Report 9263159 (Version 3)
Quarter: 2013Q2

REPORT INFORMATION
  Report Type: Spontaneous
  Country: US (occurrence: US)
  Receive Date: 20130430
  Receipt Date: 20130510
  Transmission Date: 20140414
  Serious: Yes (Death, Life-Threatening, Hospitalization, Disabling, Other)
  Sender: FDA-Public Use
  Company Number: US-009507513-1304USA016301

PATIENT
  Age: 51 Year
  Sex: Male

DRUGS (8)
  1. TEMODAR [Suspect]
     Indication: METASTATIC MALIGNANT MELANOMA
     Dosage: 140 MG, QD FOR 21 DAYS
     Route: 048
     Dates: start: 20130408, end: 20130416
  2. KEPPRA [Concomitant]
  3. BETAMETHASONE [Concomitant]
  4. BACLOFEN [Concomitant]
  5. MOBIC [Concomitant]
  6. DILAUDID [Concomitant]
  7. PROTONIX [Concomitant]
  8. MEGACE [Concomitant]

REACTIONS (1)
  - Pulmonary embolism [Fatal]
